FAERS Safety Report 10217908 (Version 2)
Quarter: 2014Q3

REPORT INFORMATION
  Report Type: Spontaneous
  Country: US (occurrence: US)
  Receive Date: 20140605
  Receipt Date: 20140705
  Transmission Date: 20150326
  Serious: No
  Sender: FDA-Public Use
  Company Number: US-009507513-1405USA010478

PATIENT
  Age: 33 Year
  Sex: Male

DRUGS (4)
  1. PEGINTRON [Suspect]
     Active Substance: PEGINTERFERON ALFA-2B
     Dosage: UNK, ^REDIPEN^
     Dates: start: 20140520
  2. PEGINTRON [Suspect]
     Active Substance: PEGINTERFERON ALFA-2B
     Indication: HEPATITIS C
     Dosage: UNK, ^REDIPEN^
     Dates: start: 20140506
  3. SOVALDI [Suspect]
     Active Substance: SOFOSBUVIR
  4. RIBAVIRIN. [Suspect]
     Active Substance: RIBAVIRIN

REACTIONS (5)
  - Product quality issue [Unknown]
  - Drug dose omission [Unknown]
  - Influenza like illness [Not Recovered/Not Resolved]
  - Product quality issue [Unknown]
  - Influenza like illness [Recovered/Resolved]

NARRATIVE: CASE EVENT DATE: 2014
